FAERS Safety Report 17302712 (Version 1)
Quarter: 2020Q1

REPORT INFORMATION
  Report Type: Spontaneous
  Country: US (occurrence: US)
  Receive Date: 20200122
  Receipt Date: 20200122
  Transmission Date: 20200409
  Serious: Yes (Hospitalization, Other)
  Sender: FDA-Public Use
  Company Number: US-ASTRAZENECA-2020SE07903

PATIENT
  Age: 23 Year
  Sex: Male
  Weight: 108.9 kg

DRUGS (10)
  1. BENADRYL [Concomitant]
     Active Substance: DIPHENHYDRAMINE HYDROCHLORIDE
     Indication: MANIA
     Dosage: AS REQUIRED
     Route: 030
  2. ZYPREXA [Suspect]
     Active Substance: OLANZAPINE
     Route: 065
     Dates: start: 2012
  3. LITHIUM. [Concomitant]
     Active Substance: LITHIUM
     Indication: BIPOLAR DISORDER
     Dates: start: 2006
  4. QUETIAPINE. [Suspect]
     Active Substance: QUETIAPINE
     Indication: BIPOLAR DISORDER
     Route: 048
  5. DEPAKOTE [Concomitant]
     Active Substance: DIVALPROEX SODIUM
     Indication: MANIA
     Route: 048
  6. HALDOL [Concomitant]
     Active Substance: HALOPERIDOL
     Indication: MANIA
     Dosage: AS REQUIRED
     Route: 030
  7. SEROQUEL XR [Suspect]
     Active Substance: QUETIAPINE FUMARATE
     Indication: BIPOLAR DISORDER
     Route: 048
     Dates: start: 201209
  8. KLONOPIN [Concomitant]
     Active Substance: CLONAZEPAM
     Indication: MANIA
     Dosage: 5.0MG UNKNOWN
     Route: 048
  9. LATUDA [Suspect]
     Active Substance: LURASIDONE HYDROCHLORIDE
     Indication: MANIA
     Route: 065
     Dates: start: 2019
  10. ATIVAN [Concomitant]
     Active Substance: LORAZEPAM
     Indication: MANIA
     Dosage: AS REQUIRED
     Route: 048

REACTIONS (19)
  - Acinic cell carcinoma of salivary gland [Recovered/Resolved]
  - Depression [Recovered/Resolved]
  - Blood triglycerides increased [Not Recovered/Not Resolved]
  - Diarrhoea [Unknown]
  - Influenza [Unknown]
  - Bipolar disorder [Recovered/Resolved]
  - Rectal haemorrhage [Not Recovered/Not Resolved]
  - Mania [Not Recovered/Not Resolved]
  - Swelling [Recovered/Resolved]
  - Dehydration [Unknown]
  - Malaise [Unknown]
  - Weight increased [Not Recovered/Not Resolved]
  - Psychotic disorder [Recovered/Resolved]
  - Aggression [Unknown]
  - Nausea [Unknown]
  - Vomiting [Unknown]
  - Blood glucose increased [Not Recovered/Not Resolved]
  - Drug ineffective [Recovered/Resolved]
  - Paternal exposure during pregnancy [Unknown]

NARRATIVE: CASE EVENT DATE: 2012
